FAERS Safety Report 17651787 (Version 3)
Quarter: 2020Q2

REPORT INFORMATION
  Report Type: Report from Study
  Country: None (occurrence: US)
  Receive Date: 20200409
  Receipt Date: 20200609
  Transmission Date: 20200713
  Serious: Yes (Hospitalization)
  Sender: FDA-Public Use
  Company Number: US-ABBVIE-20P-163-3294858-00

PATIENT
  Age: 72 Year
  Sex: Male

DRUGS (15)
  1. IMBRUVICA [Suspect]
     Active Substance: IBRUTINIB
     Indication: B-CELL LYMPHOMA
     Route: 048
     Dates: start: 20190702
  2. IMBRUVICA [Suspect]
     Active Substance: IBRUTINIB
     Route: 048
     Dates: start: 20190702
  3. ZYREXA [Concomitant]
     Indication: NAUSEA
     Dates: start: 2020
  4. ZYPREXA [Concomitant]
     Active Substance: OLANZAPINE
     Indication: NAUSEA
  5. IMBRUVICA [Suspect]
     Active Substance: IBRUTINIB
     Route: 048
     Dates: start: 20190626
  6. ANTIHISTAMINE [Concomitant]
     Active Substance: ANTIHISTAMINES NOS
     Indication: PRODUCT USED FOR UNKNOWN INDICATION
  7. BENICAR [Concomitant]
     Active Substance: OLMESARTAN MEDOXOMIL
     Indication: PRODUCT USED FOR UNKNOWN INDICATION
  8. IMBRUVICA [Suspect]
     Active Substance: IBRUTINIB
     Dosage: INADVERTENTLY TOOK TWO 420MG DOSE
     Route: 048
     Dates: start: 20200407
  9. FLUDARABINE [Suspect]
     Active Substance: FLUDARABINE PHOSPHATE
     Indication: PRODUCT USED FOR UNKNOWN INDICATION
     Route: 065
  10. ALPRAZOLAM. [Concomitant]
     Active Substance: ALPRAZOLAM
     Indication: SLEEP DISORDER
  11. IMBRUVICA [Suspect]
     Active Substance: IBRUTINIB
     Indication: DIFFUSE LARGE B-CELL LYMPHOMA
     Route: 048
     Dates: start: 201906
  12. RITUXIMAB. [Suspect]
     Active Substance: RITUXIMAB
     Indication: PRODUCT USED FOR UNKNOWN INDICATION
     Route: 065
  13. ZOFRAN [Concomitant]
     Active Substance: ONDANSETRON HYDROCHLORIDE
     Indication: NAUSEA
  14. COLCHICINE. [Suspect]
     Active Substance: COLCHICINE
     Indication: PERICARDITIS
     Route: 065
  15. CYCLOPHOSPHAMIDE. [Suspect]
     Active Substance: CYCLOPHOSPHAMIDE
     Indication: PRODUCT USED FOR UNKNOWN INDICATION
     Route: 065

REACTIONS (21)
  - Hypophagia [Unknown]
  - Fall [Unknown]
  - Vertigo [Unknown]
  - Mental disorder [Unknown]
  - Fatigue [Not Recovered/Not Resolved]
  - Insomnia [Unknown]
  - Bone contusion [Recovering/Resolving]
  - Balance disorder [Not Recovered/Not Resolved]
  - Confusional state [Not Recovered/Not Resolved]
  - Nausea [Unknown]
  - Weight decreased [Unknown]
  - Anxiety [Unknown]
  - Feeling abnormal [Unknown]
  - Pericarditis [Recovering/Resolving]
  - Dizziness [Unknown]
  - Blood sodium decreased [Recovered/Resolved]
  - Off label use [Unknown]
  - Ageusia [Unknown]
  - Pain [Unknown]
  - Memory impairment [Unknown]
  - Apathy [Unknown]

NARRATIVE: CASE EVENT DATE: 2019
